FAERS Safety Report 14406136 (Version 2)
Quarter: 2019Q1

REPORT INFORMATION
  Report Type: Spontaneous
  Country: BR (occurrence: BR)
  Receive Date: 20180118
  Receipt Date: 20190201
  Transmission Date: 20190417
  Serious: Yes (Hospitalization, Disabling, Other)
  Sender: FDA-Public Use
  Company Number: BR-ABBVIE-18K-020-2226616-00

PATIENT
  Age: 66 Year
  Sex: Female

DRUGS (5)
  1. DIACEREIN [Concomitant]
     Active Substance: DIACEREIN
     Indication: RHEUMATOID ARTHRITIS
     Dates: start: 20170628, end: 20171226
  2. HUMIRA [Suspect]
     Active Substance: ADALIMUMAB
     Indication: RHEUMATOID ARTHRITIS
     Route: 058
     Dates: start: 20140808, end: 2017
  3. IBUPROFEN. [Concomitant]
     Active Substance: IBUPROFEN
     Indication: RHEUMATOID ARTHRITIS
     Dates: start: 20170628, end: 20171226
  4. FAMOTIDINE. [Concomitant]
     Active Substance: FAMOTIDINE
     Indication: RHEUMATOID ARTHRITIS
     Dates: start: 20170628, end: 20171226
  5. HUMIRA [Suspect]
     Active Substance: ADALIMUMAB
     Indication: OSTEOARTHRITIS
     Route: 058

REACTIONS (13)
  - Urinary tract infection [Unknown]
  - Rheumatic disorder [Not Recovered/Not Resolved]
  - Arthritis [Unknown]
  - Bronchitis [Recovering/Resolving]
  - Diabetes mellitus [Unknown]
  - Pneumonia [Unknown]
  - Hypotension [Unknown]
  - Dysstasia [Not Recovered/Not Resolved]
  - Dysuria [Not Recovered/Not Resolved]
  - Emotional disorder [Unknown]
  - Hospitalisation [Unknown]
  - Musculoskeletal stiffness [Unknown]
  - Pain [Unknown]

NARRATIVE: CASE EVENT DATE: 201706
